FAERS Safety Report 5547380-1 (Version None)
Quarter: 2007Q4

REPORT INFORMATION
  Report Type: 
  Country: None (occurrence: None)
  Receive Date: 20071211
  Receipt Date: 20071129
  Transmission Date: 20080405
  Serious: Yes (Other)
  Sender: FDA-Public Use
  Company Number: US-PFIZER INC-2007102606

PATIENT
  Sex: Male
  Weight: 79.4 kg

DRUGS (7)
  1. CELEBREX [Suspect]
     Indication: PAIN
     Dates: start: 20070101, end: 20071101
  2. CHANTIX [Suspect]
     Indication: SMOKING CESSATION THERAPY
  3. LAMICTAL [Concomitant]
     Indication: AFFECTIVE DISORDER
  4. ATIVAN [Concomitant]
     Indication: ANXIETY
  5. PERCOCET [Concomitant]
  6. ALBUTEROL [Concomitant]
  7. ALL OTHER THERAPEUTIC PRODUCTS [Concomitant]

REACTIONS (7)
  - ANAL HAEMORRHAGE [None]
  - ANXIETY [None]
  - DRUG INEFFECTIVE [None]
  - HAEMOPTYSIS [None]
  - MALAISE [None]
  - MOOD ALTERED [None]
  - PAIN [None]
